FAERS Safety Report 10033095 (Version 1)
Quarter: 2014Q1

REPORT INFORMATION
  Report Type: Spontaneous
  Country: BR (occurrence: BR)
  Receive Date: 20140324
  Receipt Date: 20140324
  Transmission Date: 20141002
  Serious: Yes (Disabling)
  Sender: FDA-Public Use
  Company Number: BR-ABBVIE-14P-020-1213307-00

PATIENT
  Age: 74 Year
  Sex: Female

DRUGS (1)
  1. HUMIRA [Suspect]
     Indication: RHEUMATOID ARTHRITIS
     Dates: start: 201206, end: 201308

REACTIONS (6)
  - Visual acuity reduced [Unknown]
  - Pruritus [Unknown]
  - Pain [Unknown]
  - C-reactive protein increased [Unknown]
  - Feeling abnormal [Unknown]
  - Cataract [Unknown]
